FAERS Safety Report 6349346-0 (Version None)
Quarter: 2009Q3

REPORT INFORMATION
  Report Type: 
  Country: None (occurrence: None)
  Receive Date: 20090911
  Receipt Date: 20090831
  Transmission Date: 20100115
  Serious: Yes (Other)
  Sender: FDA-Public Use
  Company Number: US-ELI_LILLY_AND_COMPANY-US200909000169

PATIENT
  Sex: Female

DRUGS (20)
  1. HUMATROPE [Suspect]
     Indication: CEREBROVASCULAR ACCIDENT
     Dosage: 0.3 MG, UNK
     Dates: start: 20090501, end: 20090828
  2. HUMATROPE [Suspect]
     Dosage: UNK, UNKNOWN
     Dates: start: 20090831
  3. CORTEF [Concomitant]
     Dosage: UNK, UNKNOWN
  4. DHEA [Concomitant]
     Dosage: UNK, UNKNOWN
  5. PREGNENOLONE [Concomitant]
     Dosage: UNK, UNKNOWN
  6. LASIX [Concomitant]
     Dosage: UNK, UNKNOWN
  7. PROVIGIL [Concomitant]
     Dosage: UNK, UNKNOWN
  8. ARMOUR THYROID [Concomitant]
     Dosage: UNK, UNKNOWN
  9. MELATONIN [Concomitant]
     Dosage: UNK, UNKNOWN
  10. VITAMIN B-12 [Concomitant]
     Dosage: 1 ML, 2/W
  11. ESTRADIOL [Concomitant]
     Dosage: UNK, UNKNOWN
  12. ESTRIEL [Concomitant]
     Dosage: UNK, UNKNOWN
  13. PROGESTERONE [Concomitant]
     Dosage: UNK, UNKNOWN
  14. CYMBALTA [Concomitant]
     Dosage: UNK, UNKNOWN
     Dates: start: 20080101
  15. HYDROCHLOROTHIAZIDE [Concomitant]
     Dosage: UNK, UNKNOWN
  16. DIAZEPAM [Concomitant]
     Dosage: UNK, UNKNOWN
  17. FENTANYL [Concomitant]
     Dosage: UNK, UNKNOWN
  18. OXYCODONE [Concomitant]
     Dosage: UNK, AS NEEDED
  19. TYLENOL                                 /SCH/ [Concomitant]
     Dosage: UNK, AS NEEDED
  20. KLOR-CON M [Concomitant]
     Dosage: UNK, UNKNOWN

REACTIONS (9)
  - ARTHRALGIA [None]
  - ASCITES [None]
  - GENERALISED OEDEMA [None]
  - HEADACHE [None]
  - INCORRECT DOSE ADMINISTERED [None]
  - MYALGIA [None]
  - OEDEMA PERIPHERAL [None]
  - SWELLING [None]
  - WRONG TECHNIQUE IN DRUG USAGE PROCESS [None]
